FAERS Safety Report 25836947 (Version 2)
Quarter: 2025Q4

REPORT INFORMATION
  Report Type: Spontaneous
  Country: US (occurrence: US)
  Receive Date: 20250923
  Receipt Date: 20251008
  Transmission Date: 20260118
  Serious: Yes (Other)
  Sender: ASTELLAS
  Company Number: US-ASTELLAS-2025-AER-052158

PATIENT
  Age: 71 Year
  Sex: Female

DRUGS (4)
  1. PADCEV [Suspect]
     Active Substance: ENFORTUMAB VEDOTIN-EJFV
     Indication: Transitional cell carcinoma recurrent
     Dosage: DOSE INFO: ADMINISTER 0.75 MG/KG ON DAY 1 AND DAY 8?SUBSEQUENTLY REDUCED TO 60% OF ORIGINAL INTENDED
     Route: 042
  2. PADCEV [Suspect]
     Active Substance: ENFORTUMAB VEDOTIN-EJFV
     Route: 042
     Dates: start: 20230517
  3. PADCEV [Suspect]
     Active Substance: ENFORTUMAB VEDOTIN-EJFV
     Dosage: THE DOSE WAS REDUCED TO 80% OF INTENDING DOSING
     Route: 042
  4. PEMBROLIZUMAB [Concomitant]
     Active Substance: PEMBROLIZUMAB
     Indication: Transitional cell carcinoma recurrent
     Dosage: DOSE INFO: ADMINISTER PEMBROLIZUMAB 200 MG ON DAY 1 EVERY 21 DAYS.
     Route: 050

REACTIONS (7)
  - Neuropathy peripheral [Unknown]
  - Tooth abscess [Recovered/Resolved]
  - Dental caries [Unknown]
  - Tooth loss [Unknown]
  - Lacrimation increased [Unknown]
  - Gastrooesophageal reflux disease [Unknown]
  - Taste disorder [Unknown]

NARRATIVE: CASE EVENT DATE: 20240710
